FAERS Safety Report 23785093 (Version 1)
Quarter: 2024Q2

REPORT INFORMATION
  Report Type: Spontaneous
  Country: US (occurrence: None)
  Receive Date: 20240425
  Receipt Date: 20240425
  Transmission Date: 20240716
  Serious: No
  Sender: FDA-Public Use
  Company Number: None

PATIENT
  Age: 61 Year
  Sex: Female
  Weight: 103.5 kg

DRUGS (7)
  1. METHYLPREDNISOLONE [Suspect]
     Active Substance: METHYLPREDNISOLONE
     Indication: Inflammation
     Route: 048
     Dates: start: 20240420, end: 20240425
  2. NEBIVOLOL [Concomitant]
     Active Substance: NEBIVOLOL
  3. BUSPAR [Concomitant]
     Active Substance: BUSPIRONE HYDROCHLORIDE
  4. MECLIZINE [Concomitant]
     Active Substance: MECLIZINE HYDROCHLORIDE
  5. TYLENOL [Concomitant]
     Active Substance: ACETAMINOPHEN
  6. FAMOTIDINE [Concomitant]
     Active Substance: FAMOTIDINE
  7. MYLANTA [Concomitant]
     Active Substance: ALUMINUM HYDROXIDE\DIMETHICONE\MAGNESIUM HYDROXIDE

REACTIONS (5)
  - Back pain [Unknown]
  - Muscular weakness [None]
  - Muscular weakness [None]
  - Middle insomnia [None]
  - Urinary incontinence [None]

NARRATIVE: CASE EVENT DATE: 20240422
